FAERS Safety Report 10385960 (Version 2)
Quarter: 2014Q3

REPORT INFORMATION
  Report Type: Report from Study
  Country: CA (occurrence: CA)
  Receive Date: 20140814
  Receipt Date: 20140814
  Transmission Date: 20150326
  Serious: Yes (Death, Hospitalization)
  Sender: FDA-Public Use
  Company Number: CA-B.I. PHARMACEUTICALS,INC./RIDGEFIELD-2011-BP-21584BP

PATIENT
  Age: 84 Year
  Sex: Male
  Weight: 79.5 kg

DRUGS (7)
  1. VOLASERTIB [Suspect]
     Active Substance: VOLASERTIB
     Indication: ACUTE MYELOID LEUKAEMIA
     Dosage: 350 MG
     Route: 042
     Dates: start: 20110825, end: 20110825
  2. HYDROCHLOROTHIAZIDE. [Concomitant]
     Active Substance: HYDROCHLOROTHIAZIDE
     Indication: BLOOD PRESSURE INCREASED
     Dosage: 25 MG
     Route: 048
     Dates: start: 20110905
  3. CYTARABINE. [Suspect]
     Active Substance: CYTARABINE
     Indication: ACUTE MYELOID LEUKAEMIA
     Route: 058
     Dates: start: 20110825
  4. AMLODIPINE [Concomitant]
     Active Substance: AMLODIPINE BESYLATE
     Indication: BLOOD PRESSURE INCREASED
     Dosage: FORMULATION: REG
     Route: 048
     Dates: start: 20110905
  5. TELMISARTAN. [Concomitant]
     Active Substance: TELMISARTAN
     Indication: BLOOD PRESSURE INCREASED
     Dosage: 80 MG
     Route: 048
     Dates: start: 20110905
  6. SIMVASTATIN. [Concomitant]
     Active Substance: SIMVASTATIN
     Indication: HYPERCHOLESTEROLAEMIA
     Dosage: 40 MG
     Route: 048
     Dates: start: 20110905
  7. SYNTHROID [Concomitant]
     Active Substance: LEVOTHYROXINE SODIUM
     Indication: HYPOTHYROIDISM
     Dosage: 0.112 MG
     Route: 048
     Dates: start: 20110905

REACTIONS (6)
  - Hypoxia [Fatal]
  - Chest pain [Recovered/Resolved]
  - Pneumonia [Fatal]
  - Neutropenia [Not Recovered/Not Resolved]
  - Respiratory failure [Fatal]
  - Thrombocytopenia [Not Recovered/Not Resolved]

NARRATIVE: CASE EVENT DATE: 201108
